FAERS Safety Report 7869314-7 (Version None)
Quarter: 2011Q4

REPORT INFORMATION
  Report Type: 
  Country: None (occurrence: None)
  Receive Date: 20111021
  Receipt Date: 20111013
  Transmission Date: 20120403
  Serious: Yes (Hospitalization, Disabling, Other)
  Sender: FDA-Public Use
  Company Number: 2010SP028233

PATIENT
  Age: 45 Year
  Sex: Female
  Weight: 57.6068 kg

DRUGS (7)
  1. CYMBALTA [Suspect]
     Indication: MAJOR DEPRESSION
     Dosage: 60 MG, BID, QD, PO
     Route: 048
     Dates: start: 20080701
  2. NORVASC [Suspect]
     Indication: HYPERTENSION
     Dosage: 10 MG, QD, PO
     Route: 048
     Dates: start: 20080511, end: 20080901
  3. NUVARING [Suspect]
     Indication: GASTRIC BYPASS
     Dosage: VAG
     Route: 067
     Dates: start: 20061217, end: 20080503
  4. NUVARING [Suspect]
     Indication: MENSTRUAL CYCLE MANAGEMENT
     Dosage: VAG
     Route: 067
     Dates: start: 20061217, end: 20080503
  5. MULTI-VITAMINS [Concomitant]
  6. RHINOCORT [Concomitant]
  7. ALLEGRA [Concomitant]

REACTIONS (65)
  - GONORRHOEA [None]
  - CONTUSION [None]
  - INTRACRANIAL ANEURYSM [None]
  - EMOTIONAL DISORDER [None]
  - SUBARACHNOID HAEMORRHAGE [None]
  - SWELLING [None]
  - HAIR GROWTH ABNORMAL [None]
  - FATIGUE [None]
  - COITAL BLEEDING [None]
  - COGNITIVE DISORDER [None]
  - TREATMENT NONCOMPLIANCE [None]
  - HYPOGONADISM [None]
  - INSOMNIA [None]
  - LOSS OF EMPLOYMENT [None]
  - DIARRHOEA [None]
  - STRESS AT WORK [None]
  - HEPATIC LESION [None]
  - ALTERED VISUAL DEPTH PERCEPTION [None]
  - CEREBRAL HAEMORRHAGE [None]
  - HYPERTENSION [None]
  - VITAMIN B12 DEFICIENCY [None]
  - HEADACHE [None]
  - ANXIETY DISORDER [None]
  - CONVULSION [None]
  - INFLUENZA [None]
  - MENSTRUATION IRREGULAR [None]
  - MUSCLE TWITCHING [None]
  - METRORRHAGIA [None]
  - IRRITABILITY [None]
  - GRAND MAL CONVULSION [None]
  - MAJOR DEPRESSION [None]
  - CONVULSIVE THRESHOLD LOWERED [None]
  - DYSPAREUNIA [None]
  - MUSCULOSKELETAL PAIN [None]
  - BINOCULAR EYE MOVEMENT DISORDER [None]
  - PYREXIA [None]
  - EXECUTIVE DYSFUNCTION [None]
  - BALANCE DISORDER [None]
  - INJURY [None]
  - SLEEP DISORDER [None]
  - HYPOTENSION [None]
  - DYSKINESIA [None]
  - MOOD ALTERED [None]
  - BACTERIAL INFECTION [None]
  - WOUND DEHISCENCE [None]
  - SHORT-BOWEL SYNDROME [None]
  - HAEMANGIOMA OF LIVER [None]
  - BRAIN OEDEMA [None]
  - CAROTID ARTERY ANEURYSM [None]
  - HYPERGLYCAEMIA [None]
  - VARICOSE VEIN [None]
  - CONDITION AGGRAVATED [None]
  - SUTURE RELATED COMPLICATION [None]
  - CEREBROVASCULAR ARTERIOVENOUS MALFORMATION [None]
  - MEMORY IMPAIRMENT [None]
  - ENCEPHALOMALACIA [None]
  - ALOPECIA EFFLUVIUM [None]
  - SLEEP APNOEA SYNDROME [None]
  - CHLAMYDIAL INFECTION [None]
  - PERIODIC LIMB MOVEMENT DISORDER [None]
  - OSTEOPOROSIS [None]
  - HUMERUS FRACTURE [None]
  - FALL [None]
  - LIVER FUNCTION TEST ABNORMAL [None]
  - ABDOMINAL PAIN UPPER [None]
